FAERS Safety Report 7584466-4 (Version None)
Quarter: 2011Q2

REPORT INFORMATION
  Report Type: 
  Country: None (occurrence: None)
  Receive Date: 20110630
  Receipt Date: 20110629
  Transmission Date: 20111010
  Serious: Yes (Life-Threatening, Hospitalization, Other)
  Sender: FDA-Public Use
  Company Number: US-ELI_LILLY_AND_COMPANY-US201002003354

PATIENT
  Sex: Male
  Weight: 159.18 kg

DRUGS (15)
  1. LEVOTHYROXINE SODIUM [Concomitant]
  2. DRUG USED IN DIABETES [Concomitant]
     Indication: DIABETES MELLITUS
     Route: 048
  3. DIURETICS [Concomitant]
     Indication: FLUID RETENTION
     Dosage: UNK
     Dates: start: 20030101
  4. GLYBURIDE [Concomitant]
     Indication: DIABETES MELLITUS
  5. WARFARIN SODIUM [Concomitant]
  6. CARVEDILOL [Concomitant]
  7. ACTOS [Concomitant]
     Indication: DIABETES MELLITUS
  8. MORPHINE SULFATE [Concomitant]
  9. TORSEMIDE [Concomitant]
  10. INSULIN [Concomitant]
     Indication: DIABETES MELLITUS
     Dosage: UNK
     Dates: start: 20060701
  11. METFORMIN HCL [Concomitant]
     Indication: DIABETES MELLITUS
  12. IMIPRAMINE [Concomitant]
  13. BYETTA [Suspect]
     Indication: DIABETES MELLITUS
     Dosage: UNK, UNK
     Dates: start: 20060601
  14. COREG [Concomitant]
     Indication: HYPERTENSION
  15. METOLAZONE [Concomitant]

REACTIONS (4)
  - RENAL FAILURE ACUTE [None]
  - HYPOPHOSPHATAEMIA [None]
  - HYPOXIA [None]
  - ANAEMIA [None]
